FAERS Safety Report 25375466 (Version 1)
Quarter: 2025Q2

REPORT INFORMATION
  Report Type: Spontaneous
  Country: US (occurrence: US)
  Receive Date: 20250529
  Receipt Date: 20250529
  Transmission Date: 20250717
  Serious: No
  Sender: Kenvue
  Company Number: US-KENVUE-20250501113

PATIENT

DRUGS (1)
  1. MAXIMUM STRENGTH PEPCID AC ICY COOL MINT [Suspect]
     Active Substance: FAMOTIDINE
     Indication: Accidental overdose
     Dosage: 1 DOSAGE FORM, THRICE A DAY
     Route: 048

REACTIONS (1)
  - Accidental overdose [Unknown]
